FAERS Safety Report 8803858 (Version 1)
Quarter: 2012Q4

REPORT INFORMATION
  Report Type: 
  Country: US (occurrence: US)
  Receive Date: 20120924
  Receipt Date: 20120924
  Transmission Date: 20130627
  Serious: No
  Sender: FDA-Public Use
  Company Number: US-PFIZER INC-2012233066

PATIENT
  Sex: Female

DRUGS (1)
  1. ALPRAZOLAM [Suspect]
     Indication: GASTROINTESTINAL PAIN
     Dosage: 0.5 mg, 1x/day
     Dates: start: 201110

REACTIONS (3)
  - Off label use [Unknown]
  - Feeling abnormal [Unknown]
  - Malaise [Unknown]
